FAERS Safety Report 9172142 (Version 2)
Quarter: 2014Q1

REPORT INFORMATION
  Report Type: Spontaneous
  Country: US (occurrence: US)
  Receive Date: 20130319
  Receipt Date: 20140113
  Transmission Date: 20141002
  Serious: No
  Sender: FDA-Public Use
  Company Number: US-ASTRAZENECA-2013SE10176

PATIENT
  Age: 77 Year
  Sex: Female

DRUGS (4)
  1. ZESTORETIC [Suspect]
     Dosage: 20 UNKNOWN
     Route: 048
  2. ZESTORETIC [Suspect]
     Dosage: 25 UNKNOWN
     Route: 048
  3. ZESTORETIC [Suspect]
     Dosage: GENERIC
     Route: 048
  4. NUMEROUS MEDS [Concomitant]

REACTIONS (3)
  - Fluid retention [Unknown]
  - Nausea [Unknown]
  - Joint swelling [Unknown]
